FAERS Safety Report 7682197-3 (Version None)
Quarter: 2011Q3

REPORT INFORMATION
  Report Type: 
  Country: None (occurrence: None)
  Receive Date: 20110815
  Receipt Date: 20110812
  Transmission Date: 20111222
  Serious: No
  Sender: FDA-Public Use
  Company Number: US-PFIZER INC-2011186216

PATIENT
  Sex: Male
  Weight: 86.168 kg

DRUGS (3)
  1. PRISTIQ [Suspect]
     Indication: ANXIETY
  2. ANDROGEL [Concomitant]
     Indication: HYPOGONADISM
     Dosage: UNK
  3. PRISTIQ [Suspect]
     Indication: DEPRESSION
     Dosage: 50 MG, 1X/DAY
     Route: 048
     Dates: start: 20090901

REACTIONS (3)
  - WRONG TECHNIQUE IN DRUG USAGE PROCESS [None]
  - MEDICATION RESIDUE [None]
  - DIARRHOEA [None]
